FAERS Safety Report 5142160-3 (Version None)
Quarter: 2006Q4

REPORT INFORMATION
  Report Type: 
  Country: None (occurrence: None)
  Receive Date: 20061027
  Receipt Date: 20061013
  Transmission Date: 20070319
  Serious: Yes (Death)
  Sender: FDA-Public Use
  Company Number: 2006S1009246

PATIENT
  Age: 52 Year
  Sex: Male
  Weight: 86.1834 kg

DRUGS (19)
  1. FENTANYL TRANSDERMAL SYSTEM [Suspect]
     Indication: BACK PAIN
     Dosage: SEE IMAGE
     Route: 062
  2. FENTANYL TRANSDERMAL SYSTEM [Suspect]
     Indication: PAIN
     Dosage: SEE IMAGE
     Route: 062
  3. FENTANYL TRANSDERMAL SYSTEM [Suspect]
     Indication: BACK PAIN
     Dosage: SEE IMAGE
     Route: 062
  4. FENTANYL TRANSDERMAL SYSTEM [Suspect]
     Indication: PAIN
     Dosage: SEE IMAGE
     Route: 062
  5. CLONAZEPAM [Concomitant]
  6. TEMAZEPAM [Concomitant]
  7. VALPROATE SODIUM [Concomitant]
  8. SILDENAFIL [Concomitant]
  9. MIRTAZAPINE [Concomitant]
  10. PREGABALIN [Concomitant]
  11. SIMVASTATIN [Concomitant]
  12. ATENOLOL [Concomitant]
  13. CELECOXIB [Concomitant]
  14. CLONIDINE [Concomitant]
  15. MORPHINE SULFATE [Concomitant]
  16. TRAZODONE HCL [Concomitant]
  17. FLUOXETINE [Concomitant]
  18. ZOLPIDEM TARTRATE [Concomitant]
  19. COLCHICINE [Concomitant]

REACTIONS (3)
  - DRUG TOXICITY [None]
  - INTENTIONAL DRUG MISUSE [None]
  - OVERDOSE [None]
